FAERS Safety Report 7264572-4 (Version None)
Quarter: 2011Q1

REPORT INFORMATION
  Report Type: 
  Country: None (occurrence: None)
  Receive Date: 20110131
  Receipt Date: 20110127
  Transmission Date: 20110831
  Serious: No
  Sender: FDA-Public Use
  Company Number: US-PFIZER INC-2011020051

PATIENT
  Sex: Female
  Weight: 63.946 kg

DRUGS (3)
  1. SYNTHROID [Concomitant]
     Indication: THYROID DISORDER
     Dosage: UNK
  2. SERTRALINE HYDROCHLORIDE [Suspect]
     Indication: ANXIETY
     Dosage: UNK, DAILY
     Route: 048
     Dates: start: 20110126, end: 20110127
  3. LIPITOR [Suspect]
     Indication: BLOOD CHOLESTEROL INCREASED
     Dosage: UNK, DAILY
     Route: 048
     Dates: start: 20110126, end: 20110127

REACTIONS (1)
  - VISION BLURRED [None]
